FAERS Safety Report 18107192 (Version 2)
Quarter: 2021Q1

REPORT INFORMATION
  Report Type: Spontaneous
  Country: US (occurrence: US)
  Receive Date: 20200804
  Receipt Date: 20210311
  Transmission Date: 20210419
  Serious: Yes (Other)
  Sender: FDA-Public Use
  Company Number: US-SA-2020SA199367

PATIENT
  Age: 58 Year
  Sex: Male

DRUGS (2)
  1. ZANTAC [Suspect]
     Active Substance: RANITIDINE HYDROCHLORIDE
     Indication: DYSPEPSIA
     Dosage: 75 MG, QD
  2. ZANTAC [Suspect]
     Active Substance: RANITIDINE HYDROCHLORIDE
     Dosage: 150 MG, QD

REACTIONS (6)
  - Colorectal cancer stage IV [Not Recovered/Not Resolved]
  - Hepatic cancer stage IV [Not Recovered/Not Resolved]
  - Rectal cancer [Unknown]
  - Skin cancer [Recovered/Resolved]
  - Bone cancer [Not Recovered/Not Resolved]
  - Lung carcinoma cell type unspecified stage IV [Not Recovered/Not Resolved]

NARRATIVE: CASE EVENT DATE: 20100401
